FAERS Safety Report 8283480-3 (Version None)
Quarter: 2012Q2

REPORT INFORMATION
  Report Type: 
  Country: None (occurrence: None)
  Receive Date: 20120413
  Receipt Date: 20120329
  Transmission Date: 20120825
  Serious: Yes (Other)
  Sender: FDA-Public Use
  Company Number: CHPA2012CA006601

PATIENT
  Age: 60 Year
  Sex: Male

DRUGS (1)
  1. MAALOX ANTACID WITH ANTI-GAS EXTRA-STRENGTH [Suspect]
     Indication: GASTROOESOPHAGEAL REFLUX DISEASE
     Dosage: 1GULP, PRN
     Route: 048
     Dates: start: 19870101

REACTIONS (3)
  - ULCER [None]
  - OFF LABEL USE [None]
  - WRONG TECHNIQUE IN DRUG USAGE PROCESS [None]
